FAERS Safety Report 10019066 (Version 1)
Quarter: 2014Q1

REPORT INFORMATION
  Report Type: Spontaneous
  Country: US (occurrence: None)
  Receive Date: 20140314
  Receipt Date: 20140314
  Transmission Date: 20141002
  Serious: Yes (Life-Threatening)
  Sender: FDA-Public Use
  Company Number: None

PATIENT
  Age: 66 Year
  Sex: Male
  Weight: 181.4 kg

DRUGS (1)
  1. GABAPENTIN [Suspect]
     Indication: PAIN
     Route: 048
     Dates: start: 20110503, end: 20131122

REACTIONS (4)
  - Refusal of treatment by patient [None]
  - Anger [None]
  - Suicidal ideation [None]
  - Unevaluable event [None]
